FAERS Safety Report 25621965 (Version 2)
Quarter: 2025Q3

REPORT INFORMATION
  Report Type: Spontaneous
  Country: EU (occurrence: EU)
  Receive Date: 20250730
  Receipt Date: 20250814
  Transmission Date: 20251020
  Serious: No
  Sender: BAYER HEALTHCARE PHARMACEUTICALS INC.
  Company Number: EU-BAYER-2025A089096

PATIENT
  Age: 35 Year
  Sex: Female

DRUGS (2)
  1. YAZ [Suspect]
     Active Substance: DROSPIRENONE\ETHINYL ESTRADIOL
     Indication: Menstruation irregular
     Route: 048
     Dates: start: 20240627, end: 20240914
  2. YAZ [Suspect]
     Active Substance: DROSPIRENONE\ETHINYL ESTRADIOL
     Indication: Menstruation irregular
     Route: 048
     Dates: start: 20241202, end: 20250704

REACTIONS (5)
  - Eye symptom [Recovering/Resolving]
  - Dry eye [Recovering/Resolving]
  - Eye pain [Recovering/Resolving]
  - Eye pruritus [Recovering/Resolving]
  - Dry eye [Not Recovered/Not Resolved]

NARRATIVE: CASE EVENT DATE: 20250610
